FAERS Safety Report 5210687-1 (Version None)
Quarter: 2007Q1

REPORT INFORMATION
  Report Type: 
  Country: None (occurrence: None)
  Receive Date: 20070117
  Receipt Date: 20070108
  Transmission Date: 20070707
  Serious: Yes (Hospitalization)
  Sender: FDA-Public Use
  Company Number: FR-GLAXOSMITHKLINE-B0453398A

PATIENT
  Age: 46 Year
  Sex: Male

DRUGS (4)
  1. ALKERAN [Suspect]
     Indication: LYMPHOMA
     Dosage: 242MG PER DAY
     Route: 042
     Dates: start: 20060430, end: 20060430
  2. ARACYTINE [Suspect]
     Indication: LYMPHOMA
     Dosage: 346MG PER DAY
     Route: 042
     Dates: start: 20060427, end: 20060430
  3. BICNU [Suspect]
     Indication: LYMPHOMA
     Dosage: 519MG PER DAY
     Route: 042
     Dates: start: 20060426, end: 20060426
  4. VEPESIDE-SANDOZ [Suspect]
     Indication: LYMPHOMA
     Dosage: 346MG PER DAY
     Route: 042
     Dates: start: 20060427, end: 20060430

REACTIONS (4)
  - DIARRHOEA [None]
  - PANCYTOPENIA [None]
  - PYREXIA [None]
  - RASH PUSTULAR [None]
